FAERS Safety Report 6447411-0 (Version None)
Quarter: 2009Q4

REPORT INFORMATION
  Report Type: 
  Country: None (occurrence: None)
  Receive Date: 20091116
  Receipt Date: 20091109
  Transmission Date: 20100525
  Serious: Yes (Other)
  Sender: FDA-Public Use
  Company Number: 2009SP035463

PATIENT

DRUGS (1)
  1. ORGADROEN (DEXAMETHASONE SODIUM)PHOSPHATE) [Suspect]
     Indication: OTITIS MEDIA
     Dosage: ; IAUR

REACTIONS (2)
  - FACIAL PALSY [None]
  - PAIN [None]
